FAERS Safety Report 17839843 (Version 1)
Quarter: 2020Q2

REPORT INFORMATION
  Report Type: Spontaneous
  Country: GB (occurrence: GB)
  Receive Date: 20200529
  Receipt Date: 20200529
  Transmission Date: 20200714
  Serious: Yes (Other)
  Sender: FDA-Public Use
  Company Number: GB-TEVA-2020-GB-1240866

PATIENT
  Age: 40 Year
  Sex: Female
  Weight: 50 kg

DRUGS (7)
  1. VENTOLIN [Concomitant]
     Active Substance: ALBUTEROL SULFATE
     Dosage: 2 DOSAGE FORMS
     Route: 055
     Dates: start: 20191011
  2. SYMBICORT [Concomitant]
     Active Substance: BUDESONIDE\FORMOTEROL FUMARATE DIHYDRATE
     Dosage: 2 DOSAGE FORMS
     Dates: start: 20191011
  3. SERTRALINE [Concomitant]
     Active Substance: SERTRALINE HYDROCHLORIDE
     Dosage: 1 DOSAGE FORMS
     Dates: start: 20191011, end: 20200507
  4. FEXOFENADINE [Concomitant]
     Active Substance: FEXOFENADINE HYDROCHLORIDE
     Dosage: 1 DOSAGE FORMS
     Dates: start: 20191011
  5. PREDNISOLONE. [Concomitant]
     Active Substance: PREDNISOLONE
     Dosage: 6 DOSAGE FORMS
     Dates: start: 20200319, end: 20200324
  6. LORAZEPAM. [Suspect]
     Active Substance: LORAZEPAM
     Dosage: 1 MG
     Dates: start: 20200507
  7. MONTELUKAST [Concomitant]
     Active Substance: MONTELUKAST SODIUM
     Dosage: 1 DOSAGE FORMS DAILY; AT NIGHT.
     Dates: start: 20191011

REACTIONS (1)
  - Malaise [Unknown]

NARRATIVE: CASE EVENT DATE: 20200507
